FAERS Safety Report 10070859 (Version 2)
Quarter: 2014Q2

REPORT INFORMATION
  Report Type: Spontaneous
  Country: US (occurrence: None)
  Receive Date: 20140408
  Receipt Date: 20140418
  Transmission Date: 20141212
  Serious: Yes (Hospitalization)
  Sender: FDA-Public Use
  Company Number: 2014-US-003858

PATIENT
  Age: 67 Year
  Sex: Female

DRUGS (1)
  1. PRIALT [Suspect]
     Indication: SPINAL PAIN
     Dosage: UNK UG, QH, INTRATHECAL
     Route: 037

REACTIONS (3)
  - Convulsion [None]
  - Endotracheal intubation [None]
  - Unresponsive to stimuli [None]
